FAERS Safety Report 9057913 (Version 3)
Quarter: 2015Q2

REPORT INFORMATION
  Report Type: Spontaneous
  Country: IT (occurrence: IT)
  Receive Date: 20130210
  Receipt Date: 20150427
  Transmission Date: 20150821
  Serious: Yes (Death, Hospitalization)
  Sender: FDA-Public Use
  Company Number: IT-TEVA-384495ISR

PATIENT
  Age: 67 Year
  Sex: Male

DRUGS (3)
  1. SOLDESAM (DEXAMETHASONE 0.2%) [Concomitant]
     Indication: ANAPHYLAXIS PROPHYLAXIS
     Dosage: 32 GTT DAILY;
     Route: 048
     Dates: start: 20121103, end: 20130111
  2. TEMOZOLOMIDE TEVA [Suspect]
     Active Substance: TEMOZOLOMIDE
     Indication: GLIOBLASTOMA MULTIFORME
     Route: 048
     Dates: start: 20121206, end: 20130104
  3. NEXIUM [Concomitant]
     Active Substance: ESOMEPRAZOLE MAGNESIUM
     Indication: PROPHYLAXIS AGAINST GASTROINTESTINAL ULCER
     Dosage: 40 MILLIGRAM DAILY;
     Route: 048
     Dates: start: 20121103, end: 20130111

REACTIONS (2)
  - Staphylococcal sepsis [Fatal]
  - Hepatitis cholestatic [Not Recovered/Not Resolved]

NARRATIVE: CASE EVENT DATE: 20130111
